FAERS Safety Report 26217933 (Version 1)
Quarter: 2025Q4

REPORT INFORMATION
  Report Type: Spontaneous
  Country: US (occurrence: US)
  Receive Date: 20251231
  Receipt Date: 20251231
  Transmission Date: 20260118
  Serious: Yes (Hospitalization, Other)
  Sender: SANOFI AVENTIS
  Company Number: US-SA-2025SA389404

PATIENT
  Age: 60 Year
  Sex: Male
  Weight: 97.506 kg

DRUGS (1)
  1. DUPIXENT [Suspect]
     Active Substance: DUPILUMAB
     Indication: Dermatitis atopic
     Dosage: 300 MG, QOW
     Route: 058
     Dates: end: 202512

REACTIONS (2)
  - Thrombosis [Unknown]
  - Prostatic operation [Unknown]

NARRATIVE: CASE EVENT DATE: 20251201
